FAERS Safety Report 12881585 (Version 1)
Quarter: 2016Q4

REPORT INFORMATION
  Report Type: Spontaneous
  Country: US (occurrence: US)
  Receive Date: 20161025
  Receipt Date: 20161025
  Transmission Date: 20170207
  Serious: No
  Sender: FDA-Public Use
  Company Number: US-JNJFOC-20141018632

PATIENT
  Age: 70 Year
  Sex: Female
  Weight: 101 kg

DRUGS (18)
  1. FLAGYL [Suspect]
     Active Substance: METRONIDAZOLE\METRONIDAZOLE HYDROCHLORIDE
     Indication: VAGINITIS GARDNERELLA
     Route: 065
     Dates: start: 20140502
  2. ESTRING [Suspect]
     Active Substance: ESTRADIOL
     Indication: VULVOVAGINAL DRYNESS
     Route: 067
     Dates: start: 201309, end: 201406
  3. CELEXA [Concomitant]
     Active Substance: CITALOPRAM HYDROBROMIDE
     Route: 048
  4. ASCORBIC ACID. [Concomitant]
     Active Substance: ASCORBIC ACID
     Route: 065
  5. VITAMIN D [Concomitant]
     Active Substance: CHOLECALCIFEROL
     Route: 065
  6. ZINC SULFATE [Concomitant]
     Active Substance: ZINC SULFATE\ZINC SULFATE ANHYDROUS
  7. CARVEDILOL. [Concomitant]
     Active Substance: CARVEDILOL
     Route: 048
  8. VITAMIN B12 [Concomitant]
     Active Substance: CYANOCOBALAMIN
     Route: 065
  9. OMEGA-3 FATTY ACIDS [Concomitant]
     Active Substance: OMEGA-3 FATTY ACIDS
     Route: 065
  10. DIFLUCAN [Suspect]
     Active Substance: FLUCONAZOLE
     Indication: VAGINITIS GARDNERELLA
     Route: 048
     Dates: start: 20140516
  11. IRON [Concomitant]
     Active Substance: IRON
     Route: 065
  12. MIRALAX [Concomitant]
     Active Substance: POLYETHYLENE GLYCOL 3350
     Route: 048
  13. CYMBALTA [Suspect]
     Active Substance: DULOXETINE HYDROCHLORIDE
     Indication: PRODUCT USED FOR UNKNOWN INDICATION
     Route: 048
     Dates: start: 20140514
  14. TERCONAZOLE. [Suspect]
     Active Substance: TERCONAZOLE
     Indication: VAGINITIS GARDNERELLA
     Route: 065
     Dates: start: 20140502
  15. FOLIC ACID. [Concomitant]
     Active Substance: FOLIC ACID
     Route: 065
  16. CALCIUM [Concomitant]
     Active Substance: CALCIUM
     Route: 048
  17. LOSARTAN. [Concomitant]
     Active Substance: LOSARTAN
     Route: 048
  18. ANUCORT-HC [Concomitant]
     Active Substance: HYDROCORTISONE ACETATE

REACTIONS (6)
  - Lymphadenopathy [Unknown]
  - Hot flush [Unknown]
  - Rash [Recovered/Resolved]
  - Anorectal disorder [Recovered/Resolved]
  - Genital erosion [Recovered/Resolved]
  - Musculoskeletal discomfort [Unknown]

NARRATIVE: CASE EVENT DATE: 20140502
